FAERS Safety Report 8560852-0 (Version None)
Quarter: 2012Q3

REPORT INFORMATION
  Report Type: 
  Country: None (occurrence: None)
  Receive Date: 20120802
  Receipt Date: 20120724
  Transmission Date: 20120928
  Serious: Yes (Other)
  Sender: FDA-Public Use
  Company Number: US-ASTRAZENECA-2012SE52777

PATIENT
  Age: 55 Year
  Sex: Male

DRUGS (2)
  1. NEXIUM [Suspect]
     Route: 048
  2. TOPROL-XL [Suspect]
     Route: 048

REACTIONS (7)
  - MULTIPLE ALLERGIES [None]
  - DEPRESSION [None]
  - UMBILICAL HERNIA [None]
  - HYPERTENSION [None]
  - ECZEMA [None]
  - OBESITY [None]
  - TYPE 2 DIABETES MELLITUS [None]
